FAERS Safety Report 9015345 (Version 1)
Quarter: 2013Q1

REPORT INFORMATION
  Report Type: Spontaneous
  Country: US (occurrence: US)
  Receive Date: 20130116
  Receipt Date: 20130116
  Transmission Date: 20140127
  Serious: Yes (Hospitalization)
  Sender: FDA-Public Use
  Company Number: US-BAYER-2013-003946

PATIENT
  Age: 44 Year
  Sex: Female
  Weight: 95.24 kg

DRUGS (8)
  1. YASMIN [Suspect]
     Dosage: UNK
  2. YAZ [Suspect]
     Dosage: UNK
  3. ZYRTEC [Concomitant]
     Dosage: UNK
  4. PRILOSEC [Concomitant]
     Dosage: UNK
  5. ZOCOR [Concomitant]
     Dosage: UNK
  6. OSCAL [Concomitant]
     Dosage: 500 MG, UNK
  7. VITAMIN C [Concomitant]
     Dosage: 500 MG, QD
  8. LEVAQUIN [Concomitant]
     Dosage: UNK

REACTIONS (1)
  - Deep vein thrombosis [None]
